FAERS Safety Report 5437879-0 (Version None)
Quarter: 2007Q3

REPORT INFORMATION
  Report Type: 
  Country: None (occurrence: None)
  Receive Date: 20070831
  Receipt Date: 20070628
  Transmission Date: 20080115
  Serious: No
  Sender: FDA-Public Use
  Company Number: A0660416A

PATIENT
  Age: 69 Year
  Sex: Female

DRUGS (5)
  1. ALLI [Suspect]
     Dates: start: 20070618, end: 20070622
  2. DIAVAN [Concomitant]
     Indication: BLOOD PRESSURE
     Dates: start: 20061001
  3. MOVIC [Concomitant]
     Indication: ARTHRITIS
     Dates: start: 20050601
  4. PRILOSEC [Concomitant]
     Dates: start: 20020601
  5. MAXZIDE [Concomitant]
     Indication: DIURETIC THERAPY
     Dates: start: 20060601

REACTIONS (1)
  - PRURITUS [None]
